FAERS Safety Report 21729032 (Version 1)
Quarter: 2022Q4

REPORT INFORMATION
  Report Type: Spontaneous
  Country: US (occurrence: None)
  Receive Date: 20221214
  Receipt Date: 20221214
  Transmission Date: 20230113
  Serious: No
  Sender: FDA-Public Use
  Company Number: None

PATIENT
  Sex: 0

DRUGS (1)
  1. RISPERIDONE [Suspect]
     Active Substance: RISPERIDONE

REACTIONS (2)
  - Therapy non-responder [None]
  - Condition aggravated [None]
